FAERS Safety Report 24021997 (Version 2)
Quarter: 2024Q3

REPORT INFORMATION
  Report Type: Spontaneous
  Country: FR (occurrence: FR)
  Receive Date: 20240627
  Receipt Date: 20240710
  Transmission Date: 20241016
  Serious: No
  Sender: ROCHE
  Company Number: FR-ROCHE-3538182

PATIENT
  Age: 89 Year
  Sex: Female
  Weight: 50.0 kg

DRUGS (1)
  1. VABYSMO [Suspect]
     Active Substance: FARICIMAB\FARICIMAB-SVOA
     Indication: Age-related macular degeneration
     Dosage: LAST DOSE DATE: 28/FEB/2024
     Route: 065

REACTIONS (5)
  - Inflammation [Unknown]
  - Iridocyclitis [Unknown]
  - Vitritis [Unknown]
  - Vitreous floaters [Unknown]
  - Visual impairment [Unknown]

NARRATIVE: CASE EVENT DATE: 20240305
